FAERS Safety Report 9855274 (Version 2)
Quarter: 2014Q2

REPORT INFORMATION
  Report Type: Report from Study
  Country: US (occurrence: US)
  Receive Date: 20140130
  Receipt Date: 20140602
  Transmission Date: 20141212
  Serious: Yes (Life-Threatening, Hospitalization, Other)
  Sender: FDA-Public Use
  Company Number: US-JNJFOC-20140117150

PATIENT
  Age: 52 Year
  Sex: Male
  Weight: 113.4 kg

DRUGS (14)
  1. DARUNAVIR [Suspect]
     Indication: HIV INFECTION
     Route: 048
     Dates: start: 20120229
  2. COBICISTAT [Suspect]
     Indication: HIV INFECTION
     Route: 048
     Dates: start: 20120229
  3. EMTRICITABINE [Suspect]
     Indication: HIV INFECTION
     Route: 048
     Dates: start: 20120229
  4. TENOFOVIR DISOPROXIL FUMARATE [Suspect]
     Indication: HIV INFECTION
     Route: 048
     Dates: start: 20120229
  5. CARVEDILOL [Concomitant]
     Route: 048
  6. HYDROXYZINE [Concomitant]
     Indication: PRURITUS
     Route: 048
     Dates: start: 20140114
  7. IBUPROFEN [Concomitant]
     Indication: PRODUCT USED FOR UNKNOWN INDICATION
     Route: 048
     Dates: start: 20111006
  8. MOMETASONE [Concomitant]
     Indication: PRODUCT USED FOR UNKNOWN INDICATION
     Route: 061
     Dates: start: 20140130
  9. ACYCLOVIR [Concomitant]
     Route: 065
  10. ASPIRIN [Concomitant]
     Route: 048
  11. ATORVASTATIN CALCIUM [Concomitant]
     Route: 048
  12. LISINOPRIL [Concomitant]
     Route: 048
  13. PRASUGREL HYDROCHLORIDE [Concomitant]
     Route: 048
  14. VALACYCLOVIR HYDROCHLORIDE [Concomitant]
     Route: 048

REACTIONS (1)
  - Myocardial infarction [Recovered/Resolved]
